FAERS Safety Report 5997195-5 (Version None)
Quarter: 2008Q4

REPORT INFORMATION
  Report Type: 
  Country: None (occurrence: None)
  Receive Date: 20081205
  Receipt Date: 20081123
  Transmission Date: 20090506
  Serious: Yes (Other)
  Sender: FDA-Public Use
  Company Number: CHPA2008US20876

PATIENT
  Age: 23 Year
  Sex: Male
  Weight: 61.2 kg

DRUGS (1)
  1. TRIAMINIC COLD AND ALLERGY (NCH) (CHLORPHENAMINE  MALEATE, PHENYLEPHRI [Suspect]
     Dosage: ORAL
     Route: 048

REACTIONS (3)
  - BACK PAIN [None]
  - CEREBROVASCULAR ACCIDENT [None]
  - FAECES DISCOLOURED [None]
